FAERS Safety Report 25374949 (Version 2)
Quarter: 2025Q2

REPORT INFORMATION
  Report Type: Spontaneous
  Country: JP (occurrence: JP)
  Receive Date: 20250529
  Receipt Date: 20250626
  Transmission Date: 20250716
  Serious: Yes (Life-Threatening, Other)
  Sender: BAYER HEALTHCARE PHARMACEUTICALS INC.
  Company Number: JP-BAYER-2025A053948

PATIENT
  Age: 82 Year
  Sex: Male
  Weight: 158.3 kg

DRUGS (14)
  1. XOFIGO [Suspect]
     Active Substance: RADIUM RA-223 DICHLORIDE
     Indication: Hormone-refractory prostate cancer
     Dates: start: 20241018
  2. XOFIGO [Suspect]
     Active Substance: RADIUM RA-223 DICHLORIDE
     Indication: Metastases to bone
     Dates: start: 20241115
  3. XOFIGO [Suspect]
     Active Substance: RADIUM RA-223 DICHLORIDE
     Indication: Hormone-refractory prostate cancer
     Dates: start: 20241213
  4. XOFIGO [Suspect]
     Active Substance: RADIUM RA-223 DICHLORIDE
     Indication: Hormone-refractory prostate cancer
     Dates: start: 20250117
  5. XOFIGO [Suspect]
     Active Substance: RADIUM RA-223 DICHLORIDE
     Indication: Hormone-refractory prostate cancer
     Dates: start: 20250214
  6. XOFIGO [Suspect]
     Active Substance: RADIUM RA-223 DICHLORIDE
     Indication: Hormone-refractory prostate cancer
     Dates: start: 20250314
  7. ENZALUTAMIDE [Concomitant]
     Active Substance: ENZALUTAMIDE
     Indication: Hormone-refractory prostate cancer
     Dates: start: 202309, end: 20240302
  8. ENZALUTAMIDE [Concomitant]
     Active Substance: ENZALUTAMIDE
     Indication: Metastases to bone
     Dates: start: 20240521
  9. DECADRON [Concomitant]
     Active Substance: DEXAMETHASONE
     Indication: Hormone-refractory prostate cancer
     Dates: start: 20240409, end: 20240520
  10. DECADRON [Concomitant]
     Active Substance: DEXAMETHASONE
     Indication: Metastases to bone
  11. CHLORMADINONE ACETATE [Concomitant]
     Active Substance: CHLORMADINONE ACETATE
     Dates: start: 20240302
  12. DENOSUMAB [Concomitant]
     Active Substance: DENOSUMAB
     Dates: start: 20241108
  13. DENOSUMAB [Concomitant]
     Active Substance: DENOSUMAB
     Dates: start: 20241206
  14. DENOSUMAB [Concomitant]
     Active Substance: DENOSUMAB
     Dates: start: 20250106

REACTIONS (5)
  - Myelosuppression [Unknown]
  - Anaemia [None]
  - Prostatic specific antigen increased [Not Recovered/Not Resolved]
  - Decreased appetite [Not Recovered/Not Resolved]
  - Gastrointestinal wall thickening [None]

NARRATIVE: CASE EVENT DATE: 20250407
